FAERS Safety Report 5370095-X (Version None)
Quarter: 2007Q2

REPORT INFORMATION
  Report Type: 
  Country: None (occurrence: None)
  Receive Date: 20070613
  Receipt Date: 20060905
  Transmission Date: 20071010
  Serious: Yes (Other)
  Sender: FDA-Public Use
  Company Number: PHEH2006US11109

PATIENT
  Age: 83 Year
  Sex: Female

DRUGS (3)
  1. EXELON [Suspect]
     Indication: DEMENTIA
     Dosage: 3 MG, BID, ORAL
     Route: 048
     Dates: start: 20050801
  2. XANAX [Concomitant]
  3. VISTARIL (HYDROXYZINE EMBONATE) [Concomitant]

REACTIONS (3)
  - DELUSION [None]
  - HALLUCINATION, AUDITORY [None]
  - INSOMNIA [None]
